FAERS Safety Report 8866935 (Version 1)
Quarter: 2012Q4

REPORT INFORMATION
  Report Type: 
  Country: US (occurrence: US)
  Receive Date: 20121025
  Receipt Date: 20121025
  Transmission Date: 20130627
  Serious: No
  Sender: FDA-Public Use
  Company Number: US-AMGEN-USASP2012013986

PATIENT
  Age: 54 Year
  Sex: Female
  Weight: 113.38 kg

DRUGS (6)
  1. ENBREL [Suspect]
     Indication: PSORIATIC ARTHROPATHY
     Dosage: 50 mg, qwk
     Route: 058
  2. NAPROSYN /00256201/ [Concomitant]
     Dosage: 250 mg, UNK
     Route: 048
  3. METOPROLOL TARTRATE [Concomitant]
     Dosage: 100 mg, UNK
     Route: 048
  4. LISINOPRIL [Concomitant]
     Dosage: 10 mg, UNK
     Route: 048
  5. MULTIVITAMIN                       /00097801/ [Concomitant]
     Dosage: UNK
     Route: 048
  6. MAXZIDE [Concomitant]
     Dosage: UNK
     Route: 048

REACTIONS (1)
  - Drug ineffective [Unknown]
